FAERS Safety Report 7710550-8 (Version None)
Quarter: 2011Q3

REPORT INFORMATION
  Report Type: 
  Country: None (occurrence: None)
  Receive Date: 20110825
  Receipt Date: 20110818
  Transmission Date: 20111222
  Serious: Yes (Other)
  Sender: FDA-Public Use
  Company Number: US-PFIZER INC-2007036420

PATIENT

DRUGS (1)
  1. NEURONTIN [Suspect]
     Indication: NEUROPATHY PERIPHERAL
     Dosage: 300 MG, UNK
     Dates: start: 20030523

REACTIONS (4)
  - HEPATIC ENZYME INCREASED [None]
  - NEPHROLITHIASIS [None]
  - LIVER INJURY [None]
  - DEPRESSION [None]
